FAERS Safety Report 9511800 (Version 1)
Quarter: 2013Q1

REPORT INFORMATION
  Report Type: Spontaneous
  Country: US (occurrence: None)
  Receive Date: 20130305
  Receipt Date: 20130305
  Transmission Date: 20140127
  Serious: Yes (Hospitalization, Other)
  Sender: FDA-Public Use
  Company Number: 163-21180-11110568

PATIENT
  Age: 72 Year
  Sex: Female
  Weight: 47.6 kg

DRUGS (16)
  1. REVLIMID (LENALIDOMIDE) (25 MILLIGRAM, CAPSULES) [Suspect]
     Indication: AMYLOIDOSIS
     Dosage: 25 MG, DAILY FOR 21 DAYS WITH 1
     Route: 048
     Dates: start: 20110616, end: 20111027
  2. ASPIRIN (ACETYLSALICYLIC ACID) (TABLETS) [Concomitant]
  3. DECADRON (DEXAMETHASONE) (TABLETS) [Concomitant]
  4. LASIX (FUROSEMIDE) (UNKNOWN) [Concomitant]
  5. MEGACE (MEGESTROL ACETATE) (TABLETS) [Concomitant]
  6. NAPROSYN (NAPROXEN) (TABLETS) [Concomitant]
  7. MIRALAX (MACROGOL) (POWDER) [Concomitant]
  8. SENOKOT (SENNA FRUIT) (TABLETS) [Concomitant]
  9. ZOLOFT (SERTRALINE HYDROCHLORIDE) (TABLETS) [Concomitant]
  10. ZOCOR (SIMVASTATIN) (TABLETS) [Concomitant]
  11. VESICARE (SOLFENACIN SUCCINATE) (TABLETS) [Concomitant]
  12. VALTREX (VALACICLOVIR HYDROCHLORIDE) (TABLETS) [Concomitant]
  13. CEPACOL (CETYLPYRDINUM CHOLORIDE) [Concomitant]
  14. CITRUCEL (METHLYCELLUOSE) (POWDER) [Concomitant]
  15. PRILOSEC (OMEPRAZOLE) (UNKNOWN) [Concomitant]
  16. K-PHOS NEUTRAL (K-PHOS NEUTRRAL) (UNKNOWN) [Concomitant]

REACTIONS (2)
  - Pancytopenia [None]
  - Melaena [None]
